FAERS Safety Report 13474114 (Version 1)
Quarter: 2017Q2

REPORT INFORMATION
  Report Type: Spontaneous
  Country: US (occurrence: US)
  Receive Date: 20170424
  Receipt Date: 20170424
  Transmission Date: 20170830
  Serious: Yes (Other)
  Sender: FDA-Public Use
  Company Number: US-SA-2016SA130121

PATIENT
  Age: 68 Year
  Sex: Female
  Weight: 54.43 kg

DRUGS (1)
  1. LOVENOX [Suspect]
     Active Substance: ENOXAPARIN SODIUM
     Indication: HIP SURGERY
     Route: 065
     Dates: start: 20151216

REACTIONS (7)
  - Peripheral swelling [Unknown]
  - Depressed mood [Unknown]
  - Thrombosis [Recovered/Resolved]
  - Wrong technique in product usage process [Unknown]
  - Skin discolouration [Unknown]
  - Injection site bruising [Unknown]
  - Pain in extremity [Unknown]
